FAERS Safety Report 15472450 (Version 1)
Quarter: 2018Q4

REPORT INFORMATION
  Report Type: Report from Study
  Country: US (occurrence: US)
  Receive Date: 20181008
  Receipt Date: 20181008
  Transmission Date: 20190205
  Serious: Yes (Other)
  Sender: FDA-Public Use
  Company Number: US-TESARO, INC.-2018-TSO0864-US

PATIENT
  Age: 77 Year
  Sex: Female

DRUGS (2)
  1. ZEJULA [Suspect]
     Active Substance: NIRAPARIB
     Dosage: 300 MG, DAILY
     Route: 048
     Dates: start: 20180928
  2. ZEJULA [Suspect]
     Active Substance: NIRAPARIB
     Indication: OVARIAN CANCER
     Dosage: 300 MG, DAILY
     Route: 048
     Dates: start: 20180924, end: 20180926

REACTIONS (6)
  - Heart rate increased [Unknown]
  - Dry throat [Unknown]
  - Insomnia [Unknown]
  - Constipation [Unknown]
  - Cardiac flutter [Recovering/Resolving]
  - Blood pressure increased [Unknown]

NARRATIVE: CASE EVENT DATE: 201809
